FAERS Safety Report 8526212 (Version 5)
Quarter: 2020Q2

REPORT INFORMATION
  Report Type: Spontaneous
  Country: BR (occurrence: BR)
  Receive Date: 20120423
  Receipt Date: 20200406
  Transmission Date: 20200714
  Serious: Yes (Other)
  Sender: FDA-Public Use
  Company Number: BR-AMGEN-BRASP2012010998

PATIENT
  Age: 55 Year
  Sex: Female
  Weight: 60 kg

DRUGS (7)
  1. ENBREL [Suspect]
     Active Substance: ETANERCEPT
     Indication: RHEUMATOID ARTHRITIS
     Dosage: 50 MG, WEEKLY
     Route: 058
     Dates: start: 20120130
  2. TORLOS-H [Concomitant]
     Indication: HYPERTENSION
     Dosage: 50 MILLIGRAM, QD
  3. ARAVA [Concomitant]
     Active Substance: LEFLUNOMIDE
     Indication: RHEUMATOID ARTHRITIS
     Dosage: 20 MG, 1X/DAY
     Dates: start: 2007
  4. TECNOMET [METHOTREXATE] [Suspect]
     Active Substance: METHOTREXATE
     Indication: RHEUMATOID ARTHRITIS
     Dosage: 2.5MG, 6X/WEEK
     Route: 065
     Dates: start: 2006, end: 2019
  5. LIBIAM [Concomitant]
     Active Substance: TIBOLONE
     Indication: MENOPAUSE
     Dosage: UNK
     Dates: start: 2008
  6. ENALAPRIL MALEATE. [Concomitant]
     Active Substance: ENALAPRIL MALEATE
     Indication: HYPERTENSION
     Dosage: 5 MG, 1X/DAY
     Dates: start: 201203
  7. FOLIC ACID. [Concomitant]
     Active Substance: FOLIC ACID
     Indication: HEPATOBILLIARY DISORDER PROPHYLAXIS
     Dosage: 1 DF, 2X/WEEK (ONE TABLET TWICE A WEEK)
     Dates: start: 2007

REACTIONS (13)
  - Arthritis [Not Recovered/Not Resolved]
  - Pulmonary fibrosis [Recovered/Resolved]
  - Mobility decreased [Unknown]
  - Injection site pruritus [Unknown]
  - Injection site discolouration [Not Recovered/Not Resolved]
  - Anxiety [Unknown]
  - Rash macular [Recovered/Resolved]
  - Injection site swelling [Not Recovered/Not Resolved]
  - Injection site erythema [Unknown]
  - Injection site macule [Unknown]
  - Injection site hypersensitivity [Unknown]
  - Injection site induration [Unknown]
  - Injection site pain [Unknown]

NARRATIVE: CASE EVENT DATE: 2012
